FAERS Safety Report 8839874 (Version 1)
Quarter: 2012Q4

REPORT INFORMATION
  Report Type: Spontaneous
  Country: CA (occurrence: None)
  Receive Date: 20121011
  Receipt Date: 20121011
  Transmission Date: 20130627
  Serious: Yes (Death, Other)
  Sender: FDA-Public Use
  Company Number: TPA2012A07603

PATIENT
  Sex: Female

DRUGS (1)
  1. ACTOS (PIOGLITAZONE HYDROCHLORIDE) [Suspect]
     Indication: INSULIN-REQUIRING TYPE II DIABETES MELLITUS
     Dates: start: 201202

REACTIONS (6)
  - Bladder cancer [None]
  - Cystitis [None]
  - Renal failure [None]
  - Cardiac failure congestive [None]
  - Upper limb fracture [None]
  - Hip fracture [None]
